FAERS Safety Report 7583437-1 (Version None)
Quarter: 2011Q2

REPORT INFORMATION
  Report Type: 
  Country: None (occurrence: None)
  Receive Date: 20110628
  Receipt Date: 20110628
  Transmission Date: 20111010
  Serious: Yes (Hospitalization)
  Sender: FDA-Public Use
  Company Number: None

PATIENT
  Sex: Female
  Weight: 58.5 kg

DRUGS (4)
  1. FUROSEMIDE [Concomitant]
  2. CISPLATIN [Suspect]
     Dosage: 124 MG
  3. FLUOROURACIL [Suspect]
     Dosage: 1750 MG
  4. ERBITUX [Suspect]
     Dosage: 415 MG

REACTIONS (8)
  - LOSS OF CONSCIOUSNESS [None]
  - HYPOKALAEMIA [None]
  - BLOOD ELECTROLYTES DECREASED [None]
  - VOMITING [None]
  - NAUSEA [None]
  - DIZZINESS [None]
  - FALL [None]
  - PAIN [None]
